FAERS Safety Report 8543085-3 (Version None)
Quarter: 2012Q3

REPORT INFORMATION
  Report Type: 
  Country: None (occurrence: None)
  Receive Date: 20120727
  Receipt Date: 20110720
  Transmission Date: 20120928
  Serious: No
  Sender: FDA-Public Use
  Company Number: US-MYLANLABS-2011S1015295

PATIENT
  Age: 90 Year
  Sex: Female
  Weight: 58.97 kg

DRUGS (3)
  1. VITAMIN TAB [Concomitant]
  2. ANALGESICS [Concomitant]
  3. LEVOTHYROXINE SODIUM [Suspect]
     Indication: HYPOTHYROIDISM
     Route: 048

REACTIONS (4)
  - BACK PAIN [None]
  - BLOOD THYROID STIMULATING HORMONE DECREASED [None]
  - HEADACHE [None]
  - DRUG EFFECT INCREASED [None]
